FAERS Safety Report 8346337-5 (Version None)
Quarter: 2012Q2

REPORT INFORMATION
  Report Type: 
  Country: None (occurrence: None)
  Receive Date: 20120509
  Receipt Date: 20120507
  Transmission Date: 20120825
  Serious: Yes (Other)
  Sender: FDA-Public Use
  Company Number: DE-PFIZER INC-2012038941

PATIENT
  Age: 18 Year
  Sex: Female
  Weight: 54.2 kg

DRUGS (1)
  1. GENOTROPIN [Suspect]
     Indication: GROWTH HORMONE DEFICIENCY
     Dosage: 2 MG, 1X/DAY
     Dates: start: 20060801, end: 20110801

REACTIONS (4)
  - HYPOMENORRHOEA [None]
  - HYPERANDROGENISM [None]
  - POLYCYSTIC OVARIES [None]
  - INSULIN RESISTANCE [None]
